FAERS Safety Report 10592324 (Version 1)
Quarter: 2014Q4

REPORT INFORMATION
  Report Type: Spontaneous
  Country: CH (occurrence: None)
  Receive Date: 20141117
  Receipt Date: 20141117
  Transmission Date: 20150529
  Serious: Yes (Hospitalization)
  Sender: FDA-Public Use
  Company Number: 2014110015

PATIENT
  Age: 40 Year
  Sex: Male

DRUGS (13)
  1. ELTROXIN (LEVOTHYROXINE SODIUM) [Concomitant]
  2. TOREM [Suspect]
     Active Substance: TORSEMIDE
     Indication: HYPERTENSION
     Dosage: 20 MG (10 , 2 IN 1 D), ORAL
     Route: 048
     Dates: start: 2014, end: 20140513
  3. TRILEPTAL [Suspect]
     Active Substance: OXCARBAZEPINE
     Indication: EPILEPSY
     Dosage: 600 MG (300 MG, 2 IN 1 D), ORAL
     Route: 048
     Dates: start: 2014, end: 201405
  4. KEPPRA [Concomitant]
     Active Substance: LEVETIRACETAM
  5. ZANIDIP 10 MG (LERCANIDIPINE HYDROCHLORIDE) [Concomitant]
  6. ALDACTONE [Suspect]
     Active Substance: SPIRONOLACTONE
     Indication: HYPERTENSION
     Route: 048
     Dates: start: 2014, end: 20140513
  7. VI-DE 3 (COLECALCIFEROL) [Concomitant]
  8. VALVERDE (VALERIANA OFFICINALIS EXTRACT) [Concomitant]
  9. BENERVA (THIAMINE HYDROCHLORIDE) [Concomitant]
  10. MOVICOL (SODIUM BICARBONATE, POTASSIUM CHLORIDE, SODIUM CHLORIDE, MACROGOL 3350) [Concomitant]
  11. TRIATEC  (RAMIPRIL) [Concomitant]
     Active Substance: RAMIPRIL
  12. BEROCCA (PYRIDOXINE HYDROCHLORIDE, THIAMINE HYDROCHLORIDE, DEXPANTHENOL, RIBOFLAVIN, NICOTINAMIDE) [Concomitant]
  13. FORTIMEL (PROTEINS  NOS) [Concomitant]

REACTIONS (3)
  - Vertigo [None]
  - Hyponatraemia [None]
  - Pyrexia [None]

NARRATIVE: CASE EVENT DATE: 2014
